FAERS Safety Report 13256583 (Version 1)
Quarter: 2017Q1

REPORT INFORMATION
  Report Type: Spontaneous
  Country: US (occurrence: US)
  Receive Date: 20170220
  Receipt Date: 20170220
  Transmission Date: 20170428
  Serious: Yes (Hospitalization)
  Sender: FDA-Public Use
  Company Number: None

PATIENT
  Age: 65 Year
  Sex: Male
  Weight: 116.9 kg

DRUGS (5)
  1. WARFARIN [Suspect]
     Active Substance: WARFARIN
     Indication: ATRIAL FIBRILLATION
     Route: 048
  2. PARENTERAL NUTRITION [Concomitant]
     Active Substance: AMINO ACIDS\DEXTROSE\ELECTROLYTES NOS
  3. METRONIDAZOLE. [Concomitant]
     Active Substance: METRONIDAZOLE
  4. UNASYN [Concomitant]
     Active Substance: AMPICILLIN SODIUM\SULBACTAM SODIUM
  5. INSULIN LISPRO [Concomitant]
     Active Substance: INSULIN LISPRO

REACTIONS (2)
  - Rectal haemorrhage [None]
  - Anaemia [None]

NARRATIVE: CASE EVENT DATE: 20170218
